FAERS Safety Report 25656935 (Version 1)
Quarter: 2025Q3

REPORT INFORMATION
  Report Type: Report from Study
  Country: CO (occurrence: CO)
  Receive Date: 20250807
  Receipt Date: 20250807
  Transmission Date: 20251021
  Serious: Yes (Death)
  Sender: ABBVIE
  Company Number: CO-ABBVIE-6405634

PATIENT
  Age: 66 Year
  Sex: Male

DRUGS (1)
  1. VENCLEXTA [Suspect]
     Active Substance: VENETOCLAX
     Indication: Acute myeloid leukaemia
     Dosage: STRENGTH: 100MG
     Route: 048
     Dates: start: 20240516, end: 20250723

REACTIONS (1)
  - Death [Fatal]

NARRATIVE: CASE EVENT DATE: 20250724
